FAERS Safety Report 6245869-3 (Version None)
Quarter: 2009Q2

REPORT INFORMATION
  Report Type: 
  Country: None (occurrence: None)
  Receive Date: 20090626
  Receipt Date: 20090619
  Transmission Date: 20091009
  Serious: Yes (Hospitalization)
  Sender: FDA-Public Use
  Company Number: IT-SP-2009-02488

PATIENT
  Age: 77 Year
  Sex: Male

DRUGS (1)
  1. IMMUCYST [Suspect]
     Indication: BLADDER CANCER
     Dosage: MONTHLY
     Route: 043
     Dates: start: 20070611, end: 20081106

REACTIONS (5)
  - HYPERPYREXIA [None]
  - MYCOBACTERIA URINE TEST POSITIVE [None]
  - MYCOBACTERIAL INFECTION [None]
  - TUBERCULOSIS [None]
  - TUBERCULOSIS TEST POSITIVE [None]
